FAERS Safety Report 6336697-9 (Version None)
Quarter: 2009Q3

REPORT INFORMATION
  Report Type: 
  Country: None (occurrence: None)
  Receive Date: 20090901
  Receipt Date: 20090821
  Transmission Date: 20100115
  Serious: Yes (Other)
  Sender: FDA-Public Use
  Company Number: PT-MERCK-0908PRT00009

PATIENT
  Age: 71 Year
  Sex: Female

DRUGS (8)
  1. FOSAMAX PLUS D [Suspect]
     Indication: OSTEOPENIA
     Route: 048
     Dates: start: 20040101
  2. CETIRIZINE HYDROCHLORIDE [Concomitant]
  3. ALLOPURINOL [Concomitant]
     Indication: HYPERURICAEMIA
     Route: 065
  4. PRAVASTATIN SODIUM [Concomitant]
     Indication: HYPERCHOLESTEROLAEMIA
     Route: 065
  5. DICLOFENAC SODIUM [Concomitant]
     Route: 065
  6. MISOPROSTOL [Concomitant]
     Route: 065
  7. OLMESARTAN MEDOXOMIL [Concomitant]
     Route: 065
  8. AMLODIPINE [Concomitant]
     Indication: HYPERTENSION
     Route: 065

REACTIONS (1)
  - OSTEONECROSIS [None]
